FAERS Safety Report 17290128 (Version 1)
Quarter: 2020Q1

REPORT INFORMATION
  Report Type: Spontaneous
  Country: JP (occurrence: JP)
  Receive Date: 20200120
  Receipt Date: 20200120
  Transmission Date: 20200409
  Serious: Yes (Hospitalization, Other)
  Sender: FDA-Public Use
  Company Number: JP-BAXTER-2020BAX001050

PATIENT
  Age: 19 Year
  Sex: Male

DRUGS (14)
  1. DEPAKENE [Concomitant]
     Active Substance: VALPROIC ACID
     Indication: PRODUCT USED FOR UNKNOWN INDICATION
     Route: 065
  2. FUNGUARD [Concomitant]
     Active Substance: MICAFUNGIN SODIUM
     Indication: PRODUCT USED FOR UNKNOWN INDICATION
     Route: 065
  3. VALACICLOVIR HYDROCHLORIDE [Concomitant]
     Active Substance: VALACYCLOVIR HYDROCHLORIDE
     Indication: PRODUCT USED FOR UNKNOWN INDICATION
     Route: 065
  4. FLUDARA [Suspect]
     Active Substance: FLUDARABINE PHOSPHATE
     Indication: BONE MARROW CONDITIONING REGIMEN
     Route: 065
     Dates: start: 20190725
  5. FLUDARA [Suspect]
     Active Substance: FLUDARABINE PHOSPHATE
     Indication: ACUTE MYELOID LEUKAEMIA
  6. EMEND [Concomitant]
     Active Substance: APREPITANT
     Indication: PRODUCT USED FOR UNKNOWN INDICATION
     Route: 065
  7. LEVOFLOXACIN. [Concomitant]
     Active Substance: LEVOFLOXACIN
     Indication: PRODUCT USED FOR UNKNOWN INDICATION
     Route: 065
  8. PARIET [Concomitant]
     Active Substance: RABEPRAZOLE SODIUM
     Indication: PRODUCT USED FOR UNKNOWN INDICATION
     Route: 065
  9. MIYA-BM [Concomitant]
     Active Substance: CLOSTRIDIUM BUTYRICUM SPORES STRAIN M-55
     Indication: PRODUCT USED FOR UNKNOWN INDICATION
     Dosage: TABLET
     Route: 065
  10. BUSULFEX [Suspect]
     Active Substance: BUSULFAN
     Indication: BONE MARROW CONDITIONING REGIMEN
     Route: 042
     Dates: start: 20190725, end: 20190728
  11. ENDOXAN 1G [Suspect]
     Active Substance: CYCLOPHOSPHAMIDE
     Indication: PRODUCT USED FOR UNKNOWN INDICATION
     Route: 042
     Dates: start: 20190803, end: 20190804
  12. BUSULFEX [Suspect]
     Active Substance: BUSULFAN
     Indication: ACUTE MYELOID LEUKAEMIA
  13. GRANISETRON [Concomitant]
     Active Substance: GRANISETRON
     Indication: PRODUCT USED FOR UNKNOWN INDICATION
     Route: 065
  14. UROMITEXAN 400 MG [Suspect]
     Active Substance: MESNA
     Indication: PRODUCT USED FOR UNKNOWN INDICATION
     Route: 065

REACTIONS (8)
  - Haematuria [Unknown]
  - Liver function test abnormal [Recovering/Resolving]
  - Febrile neutropenia [Unknown]
  - Cystitis [Unknown]
  - Back pain [Unknown]
  - Venoocclusive liver disease [Recovered/Resolved]
  - Gallbladder oedema [Unknown]
  - Mucosal disorder [Unknown]

NARRATIVE: CASE EVENT DATE: 2019
